FAERS Safety Report 20462930 (Version 1)
Quarter: 2022Q1

REPORT INFORMATION
  Report Type: Report from Study
  Country: CA (occurrence: CA)
  Receive Date: 20220211
  Receipt Date: 20220211
  Transmission Date: 20220424
  Serious: Yes (Death)
  Sender: FDA-Public Use
  Company Number: CA-PFIZER INC-202200229632

PATIENT
  Age: 52 Year
  Sex: Female

DRUGS (3)
  1. IRINOTECAN HYDROCHLORIDE [Suspect]
     Active Substance: IRINOTECAN HYDROCHLORIDE
     Indication: Oesophageal adenocarcinoma
     Dosage: 60-90 MINUTES ON 28 DAY CYCLE (300 MG)
     Route: 042
     Dates: start: 20211207
  2. OXALIPLATIN [Suspect]
     Active Substance: OXALIPLATIN
     Indication: Oesophageal adenocarcinoma
     Dosage: OVER 2 HOURS ON 28 DAYS CYCLE (185 MG)
     Route: 042
     Dates: start: 20211207
  3. TIPIRACIL HYDROCHLORIDE\TRIFLURIDINE [Suspect]
     Active Substance: TIPIRACIL HYDROCHLORIDE\TRIFLURIDINE
     Indication: Oesophageal adenocarcinoma
     Dosage: CURRENT CYCLE UNKNOWN (45 MG TWICE DAILY)
     Route: 048
     Dates: start: 20211207

REACTIONS (1)
  - Death [Fatal]

NARRATIVE: CASE EVENT DATE: 20211221
